FAERS Safety Report 5022324-X (Version None)
Quarter: 2006Q2

REPORT INFORMATION
  Report Type: 
  Country: None (occurrence: None)
  Receive Date: 20060502
  Receipt Date: 20051122
  Transmission Date: 20061013
  Serious: Yes (Hospitalization)
  Sender: FDA-Public Use
  Company Number: PHEH2005US10618

PATIENT
  Age: 33 Year
  Sex: Male

DRUGS (4)
  1. LOTREL [Suspect]
     Indication: HYPERTENSION
     Dosage: 10/20MG, QD, ORAL
     Route: 048
     Dates: start: 20050118, end: 20050502
  2. BENICAR [Concomitant]
  3. ZANTAC [Concomitant]
  4. REGLAN /USA/ (METOCLOPRAMIDE HYDROCHLORIDE) [Concomitant]

REACTIONS (5)
  - ABDOMINAL PAIN [None]
  - HEPATITIS [None]
  - JAUNDICE [None]
  - LIVER FUNCTION TEST ABNORMAL [None]
  - NAUSEA [None]
